FAERS Safety Report 9845897 (Version 1)
Quarter: 2014Q1

REPORT INFORMATION
  Report Type: Spontaneous
  Country: US (occurrence: US)
  Receive Date: 20140127
  Receipt Date: 20140127
  Transmission Date: 20141002
  Serious: No
  Sender: FDA-Public Use
  Company Number: US-PFIZER INC-2014024476

PATIENT
  Age: 78 Year
  Sex: Female
  Weight: 50.79 kg

DRUGS (3)
  1. ZOLOFT [Suspect]
     Indication: DEPRESSION
     Dosage: 25 MG, DAILY
     Dates: start: 20130715
  2. METOPROLOL [Concomitant]
     Indication: BLOOD PRESSURE
     Dosage: UNK
  3. ALLOPURINOL [Concomitant]
     Indication: GOUT
     Dosage: UNK

REACTIONS (6)
  - Feeling abnormal [Unknown]
  - Diarrhoea [Unknown]
  - Dyspnoea [Unknown]
  - Anxiety [Unknown]
  - Insomnia [Unknown]
  - Eye disorder [Unknown]
